FAERS Safety Report 8106623-0 (Version None)
Quarter: 2012Q1

REPORT INFORMATION
  Report Type: 
  Country: None (occurrence: None)
  Receive Date: 20120202
  Receipt Date: 20120123
  Transmission Date: 20120608
  Serious: Yes (Hospitalization, Other)
  Sender: FDA-Public Use
  Company Number: US-ELI_LILLY_AND_COMPANY-US201201007244

PATIENT
  Sex: Female

DRUGS (5)
  1. LORAZEPAM [Concomitant]
  2. CYMBALTA [Suspect]
     Indication: DEPRESSION
     Dosage: 60 MG, QD
     Dates: end: 20120109
  3. CYMBALTA [Suspect]
     Dosage: 60 MG, QD
     Dates: start: 20120101
  4. ATIVAN [Concomitant]
  5. ZOLPIDEM [Concomitant]

REACTIONS (9)
  - INTENTIONAL DRUG MISUSE [None]
  - PANCREATIC ENZYMES INCREASED [None]
  - HEPATIC ENZYME INCREASED [None]
  - SUICIDAL IDEATION [None]
  - HEPATIC PAIN [None]
  - DRUG WITHDRAWAL SYNDROME [None]
  - DRUG WITHDRAWAL HEADACHE [None]
  - MALAISE [None]
  - FATIGUE [None]
